FAERS Safety Report 8973226 (Version 1)
Quarter: 2012Q4

REPORT INFORMATION
  Report Type: 
  Country: US (occurrence: US)
  Receive Date: 20121218
  Receipt Date: 20121218
  Transmission Date: 20130627
  Serious: Yes (Hospitalization, Other)
  Sender: FDA-Public Use
  Company Number: US-TARO-2012P1066939

PATIENT
  Age: 64 Year
  Sex: Female

DRUGS (1)
  1. FLUOROURACIL [Suspect]
     Route: 061

REACTIONS (10)
  - Toxicity to various agents [Recovered/Resolved]
  - Dyspnoea [Recovered/Resolved]
  - Chromaturia [Recovered/Resolved]
  - Pruritus [Recovered/Resolved]
  - Skin erosion [Recovered/Resolved]
  - Rash macular [Recovered/Resolved]
  - Fatigue [Recovered/Resolved]
  - Transaminases increased [Recovered/Resolved]
  - Alanine aminotransferase increased [None]
  - Aspartate aminotransferase increased [None]
